FAERS Safety Report 9578417 (Version 1)
Quarter: 2013Q4

REPORT INFORMATION
  Report Type: Spontaneous
  Country: US (occurrence: US)
  Receive Date: 20131001
  Receipt Date: 20131001
  Transmission Date: 20140711
  Serious: No
  Sender: FDA-Public Use
  Company Number: US-AMGEN-USASP2013013111

PATIENT
  Age: 47 Year
  Sex: Female
  Weight: 108.84 kg

DRUGS (7)
  1. ENBREL [Suspect]
     Indication: PSORIATIC ARTHROPATHY
     Dosage: 50 MG, QWK
     Route: 058
  2. SYNTHROID [Concomitant]
     Dosage: 100 MUT, UNK
  3. CRESTOR [Concomitant]
     Dosage: 10 MG, UNK
  4. SINGULAIR [Concomitant]
     Dosage: 4 MG, UNK
  5. DICLOFENAC [Concomitant]
     Dosage: 50 MG, UNK
  6. VITAMIN D3 [Concomitant]
     Dosage: 2000 UNIT, UNK
  7. ZOLOFT [Concomitant]
     Dosage: 25 MG, UNK

REACTIONS (1)
  - Influenza [Unknown]
